FAERS Safety Report 5103077-3 (Version None)
Quarter: 2006Q3

REPORT INFORMATION
  Report Type: 
  Country: None (occurrence: None)
  Receive Date: 20060907
  Receipt Date: 20060825
  Transmission Date: 20061208
  Serious: Yes (Hospitalization)
  Sender: FDA-Public Use
  Company Number: 6025355

PATIENT
  Age: 53 Year
  Sex: Male

DRUGS (2)
  1. LODOZ (TABLET) (HYDROCHLOROTHIAZIDE, BISOPROLOL FUMARATE) [Suspect]
     Indication: SECONDARY HYPERTENSION
     Dosage: ORAL
     Route: 048
  2. TARKA [Suspect]
     Indication: SECONDARY HYPERTENSION
     Dosage: ORAL
     Route: 048

REACTIONS (4)
  - AORTIC ANEURYSM [None]
  - ATRIAL FLUTTER [None]
  - HEART RATE DECREASED [None]
  - RIGHT VENTRICULAR FAILURE [None]
